FAERS Safety Report 17825968 (Version 1)
Quarter: 2020Q2

REPORT INFORMATION
  Report Type: Spontaneous
  Country: ES (occurrence: ES)
  Receive Date: 20200526
  Receipt Date: 20200526
  Transmission Date: 20200714
  Serious: Yes (Disabling, Other)
  Sender: FDA-Public Use
  Company Number: ES-MYLANLABS-2020M1050685

PATIENT
  Age: 51 Year
  Sex: Female

DRUGS (2)
  1. TAMOXIFENO CINFA [Suspect]
     Active Substance: TAMOXIFEN CITRATE
     Indication: HORMONE RECEPTOR POSITIVE BREAST CANCER
     Dosage: 20 MILLIGRAM, QD
  2. TAMOXIFENO FUNK 20 MG COMPRIMIDOS [Suspect]
     Active Substance: TAMOXIFEN CITRATE
     Indication: HORMONE RECEPTOR POSITIVE BREAST CANCER
     Dosage: 20 MILLIGRAM, QD
     Dates: start: 201308

REACTIONS (4)
  - Cataract [Not Recovered/Not Resolved]
  - Retinal tear [Recovered/Resolved]
  - Vitreous detachment [Recovered/Resolved]
  - Vision blurred [Unknown]

NARRATIVE: CASE EVENT DATE: 2018
